FAERS Safety Report 7198563-9 (Version None)
Quarter: 2010Q4

REPORT INFORMATION
  Report Type: 
  Country: None (occurrence: None)
  Receive Date: 20101203
  Receipt Date: 20101125
  Transmission Date: 20110411
  Serious: Yes (Hospitalization)
  Sender: FDA-Public Use
  Company Number: 2010SP061928

PATIENT
  Age: 56 Year
  Sex: Male

DRUGS (5)
  1. TEMODAL [Suspect]
     Indication: GLIOBLASTOMA MULTIFORME
     Dosage: PO
     Route: 048
     Dates: start: 20090801, end: 20101004
  2. DEPAKENE [Suspect]
     Indication: CONVULSION
     Dosage: 1.5 GM;TID;PO
     Route: 048
     Dates: start: 20100819, end: 20101024
  3. OMEPRAZOLE [Concomitant]
  4. FORTECORTIN [Concomitant]
  5. KEPPRA [Concomitant]

REACTIONS (2)
  - CYTOLYTIC HEPATITIS [None]
  - HYPERBILIRUBINAEMIA [None]
